FAERS Safety Report 4545593-9 (Version None)
Quarter: 2005Q1

REPORT INFORMATION
  Report Type: 
  Country: None (occurrence: None)
  Receive Date: 20050103
  Receipt Date: 20041214
  Transmission Date: 20050727
  Serious: Yes (Other)
  Sender: FDA-Public Use
  Company Number: USA041184217

PATIENT
  Age: 9 Year
  Sex: Male
  Weight: 30 kg

DRUGS (1)
  1. STRATTERA [Suspect]
     Indication: ATTENTION DEFICIT/HYPERACTIVITY DISORDER
     Dosage: 25 MG DAY
     Dates: start: 20030101, end: 20041119

REACTIONS (4)
  - HAEMATURIA [None]
  - LABORATORY TEST ABNORMAL [None]
  - PROTEIN URINE PRESENT [None]
  - TREATMENT NONCOMPLIANCE [None]
